FAERS Safety Report 6313443-6 (Version None)
Quarter: 2009Q3

REPORT INFORMATION
  Report Type: 
  Country: None (occurrence: None)
  Receive Date: 20090818
  Receipt Date: 20090810
  Transmission Date: 20100115
  Serious: Yes (Hospitalization)
  Sender: FDA-Public Use
  Company Number: US-JNJFOC-20090803738

PATIENT
  Age: 21 Year
  Sex: Male

DRUGS (1)
  1. ARESTIN [Suspect]
     Indication: DRUG USE FOR UNKNOWN INDICATION

REACTIONS (9)
  - ABDOMINAL PAIN UPPER [None]
  - BACTERIAL INFECTION [None]
  - CANDIDIASIS [None]
  - DIARRHOEA [None]
  - MALAISE [None]
  - OESOPHAGEAL ULCER [None]
  - PHARYNGEAL ULCERATION [None]
  - PYREXIA [None]
  - VOMITING [None]
